FAERS Safety Report 7918564-X (Version None)
Quarter: 2011Q4

REPORT INFORMATION
  Report Type: 
  Country: None (occurrence: None)
  Receive Date: 20111116
  Receipt Date: 20111107
  Transmission Date: 20120403
  Serious: Yes (Life-Threatening, Hospitalization)
  Sender: FDA-Public Use
  Company Number: US-BAYER-2011-062558

PATIENT
  Age: 50 Year
  Sex: Female

DRUGS (3)
  1. DIOVAN [Concomitant]
     Dosage: DAILY DOSE 80 MG
     Route: 048
  2. YASMIN [Suspect]
     Indication: PRODUCT USED FOR UNKNOWN INDICATION
     Dosage: UNK
  3. IRON [Concomitant]
     Dosage: DAILY DOSE 325 MG
     Route: 048

REACTIONS (13)
  - HYPOAESTHESIA [None]
  - PAIN [None]
  - EMOTIONAL DISTRESS [None]
  - BURNING SENSATION [None]
  - INJURY [None]
  - ANXIETY [None]
  - ANHEDONIA [None]
  - DYSSTASIA [None]
  - MOBILITY DECREASED [None]
  - PULMONARY EMBOLISM [None]
  - DEEP VEIN THROMBOSIS [None]
  - OEDEMA PERIPHERAL [None]
  - PARAESTHESIA [None]
